FAERS Safety Report 5871272-1 (Version None)
Quarter: 2008Q3

REPORT INFORMATION
  Report Type: 
  Country: None (occurrence: None)
  Receive Date: 20080904
  Receipt Date: 20080904
  Transmission Date: 20090109
  Serious: No
  Sender: FDA-Public Use
  Company Number: None

PATIENT
  Sex: Female
  Weight: 109.3169 kg

DRUGS (13)
  1. BYETTA [Suspect]
     Dosage: 10MG ONCE/DAY SQ
     Route: 058
  2. GLIPIZIDE [Concomitant]
  3. METFORMIN [Concomitant]
  4. GEMFIBROZIL [Concomitant]
  5. LANTUS [Concomitant]
  6. MORPHINE [Concomitant]
  7. DIOVAN [Concomitant]
  8. SIMVASTATIN [Concomitant]
  9. ZANAFLEX [Concomitant]
  10. ATENOLOL [Concomitant]
  11. OMEPRAZOLE [Concomitant]
  12. LYRICA [Concomitant]
  13. FUROSEMIDE [Concomitant]

REACTIONS (3)
  - CHOLECYSTECTOMY [None]
  - NAUSEA [None]
  - VOMITING [None]
